FAERS Safety Report 25012291 (Version 1)
Quarter: 2025Q1

REPORT INFORMATION
  Report Type: Spontaneous
  Country: JP (occurrence: JP)
  Receive Date: 20250226
  Receipt Date: 20250226
  Transmission Date: 20250409
  Serious: Yes (Other)
  Sender: SUNOVION
  Company Number: JP-SMPA-2025SPA002363

PATIENT

DRUGS (1)
  1. RELUGOLIX [Suspect]
     Active Substance: RELUGOLIX
     Indication: Uterine leiomyoma
     Route: 048

REACTIONS (2)
  - Melaena [Recovering/Resolving]
  - Intermenstrual bleeding [Recovering/Resolving]
